FAERS Safety Report 8379365-4 (Version None)
Quarter: 2012Q2

REPORT INFORMATION
  Report Type: 
  Country: None (occurrence: None)
  Receive Date: 20120523
  Receipt Date: 20120521
  Transmission Date: 20120825
  Serious: Yes (Death)
  Sender: FDA-Public Use
  Company Number: PHHY2012DE043568

PATIENT
  Age: 39 Year

DRUGS (2)
  1. CARBAMAZEPINE [Suspect]
     Dosage: 100 MG, UNK
  2. CARBAMAZEPINE [Suspect]
     Dosage: 400 MG, PER DAY

REACTIONS (1)
  - DEATH [None]
